FAERS Safety Report 8156060-8 (Version None)
Quarter: 2012Q1

REPORT INFORMATION
  Report Type: 
  Country: None (occurrence: None)
  Receive Date: 20120103
  Receipt Date: 20110823
  Transmission Date: 20120608
  Serious: No
  Sender: FDA-Public Use
  Company Number: AE-2011-000812

PATIENT
  Age: 47 Year
  Sex: Female
  Weight: 72.5755 kg

DRUGS (6)
  1. PEGINTERFERON ALFA-2A [Concomitant]
  2. INCIVEK [Suspect]
     Dosage: 2250 MG (750 MG, 1 IN 8 HR), ORAL
     Route: 048
     Dates: start: 20110728
  3. RIBAVIRIN [Concomitant]
  4. LORTAB [Concomitant]
  5. MS CONTIN [Concomitant]
  6. SOMA [Concomitant]

REACTIONS (4)
  - PYREXIA [None]
  - SINUSITIS [None]
  - BACK PAIN [None]
  - CHILLS [None]
